FAERS Safety Report 8524995-X (Version None)
Quarter: 2012Q3

REPORT INFORMATION
  Report Type: 
  Country: None (occurrence: None)
  Receive Date: 20120720
  Receipt Date: 20120718
  Transmission Date: 20120928
  Serious: Yes (Death)
  Sender: FDA-Public Use
  Company Number: US-ROCHE-1087578

PATIENT
  Sex: Male

DRUGS (1)
  1. LUCENTIS [Suspect]
     Indication: RETINAL VEIN OCCLUSION
     Dates: start: 20081022, end: 20090422

REACTIONS (1)
  - PARKINSON'S DISEASE [None]
